FAERS Safety Report 8364486-2 (Version None)
Quarter: 2012Q2

REPORT INFORMATION
  Report Type: 
  Country: None (occurrence: None)
  Receive Date: 20120514
  Receipt Date: 20120426
  Transmission Date: 20120825
  Serious: Yes (Hospitalization)
  Sender: FDA-Public Use
  Company Number: JPI-P-015895

PATIENT
  Age: 63 Year
  Sex: Female

DRUGS (2)
  1. MULTIPLE UNSPECIFIED MEDICATIONS [Concomitant]
  2. XYREM [Suspect]
     Indication: CHRONIC FATIGUE SYNDROME
     Dosage: 3 GM (1.5 GM, 2 IN 1 D), ORAL
     Route: 048
     Dates: start: 20100819

REACTIONS (3)
  - CHOLANGITIS [None]
  - PANCREATITIS [None]
  - SEPSIS [None]
